FAERS Safety Report 12085378 (Version 1)
Quarter: 2016Q1

REPORT INFORMATION
  Report Type: Report from Study
  Country: ID (occurrence: ID)
  Receive Date: 20160217
  Receipt Date: 20160217
  Transmission Date: 20160526
  Serious: Yes (Death, Hospitalization, Other)
  Sender: FDA-Public Use
  Company Number: ID-ASTELLAS-2016US000469

PATIENT
  Age: 58 Year
  Sex: Female

DRUGS (1)
  1. ERLOTINIB [Suspect]
     Active Substance: ERLOTINIB
     Indication: LUNG NEOPLASM MALIGNANT
     Dosage: UNK, ONCE DAILY
     Route: 065
     Dates: start: 20150327, end: 20160123

REACTIONS (7)
  - Dyspnoea [Unknown]
  - Pyrexia [Fatal]
  - Asthenia [Not Recovered/Not Resolved]
  - Neck mass [Unknown]
  - Anaemia [Unknown]
  - Communication disorder [Unknown]
  - General physical health deterioration [Fatal]

NARRATIVE: CASE EVENT DATE: 20160118
